FAERS Safety Report 8117341-7 (Version None)
Quarter: 2012Q1

REPORT INFORMATION
  Report Type: 
  Country: None (occurrence: None)
  Receive Date: 20120206
  Receipt Date: 20110705
  Transmission Date: 20120608
  Serious: Yes (Disabling, Other)
  Sender: FDA-Public Use
  Company Number: PHHY2011US58102

PATIENT
  Sex: Male
  Weight: 54.422 kg

DRUGS (1)
  1. EXJADE [Suspect]
     Indication: IRON OVERLOAD
     Dosage: 1250 MG QD
     Route: 048
     Dates: start: 20110615, end: 20110714

REACTIONS (5)
  - ASTHENIA [None]
  - DECREASED APPETITE [None]
  - URINARY TRACT INFECTION [None]
  - FATIGUE [None]
  - CONSTIPATION [None]
